FAERS Safety Report 8524678-6 (Version None)
Quarter: 2012Q3

REPORT INFORMATION
  Report Type: 
  Country: None (occurrence: None)
  Receive Date: 20120720
  Receipt Date: 20120625
  Transmission Date: 20120928
  Serious: No
  Sender: FDA-Public Use
  Company Number: US-009507513-1207USA002517

PATIENT

DRUGS (11)
  1. XANTHOPHYLL [Concomitant]
     Dosage: 2 MG, UNK
  2. VITAMIN E [Concomitant]
     Dosage: 100 UNK, UNK
  3. VITAMINS (UNSPECIFIED) [Concomitant]
  4. ALTACE [Concomitant]
     Dosage: 2.5 MG, UNK
  5. XANAX [Concomitant]
  6. ANAFRANIL [Concomitant]
     Dosage: 25 MG, UNK
  7. PEPCID [Suspect]
     Indication: HIATUS HERNIA
     Dosage: 40 MG, UNK
     Route: 048
     Dates: start: 20120621, end: 20120623
  8. OMEGA-3 MARINE TRIGLYCERIDES [Concomitant]
     Dosage: 1000 MG, UNK
  9. ZOLOFT [Concomitant]
     Dosage: 100 MG, BID
  10. VALIUM [Concomitant]
     Dosage: 2 MG, UNK
  11. VISTARIL [Concomitant]

REACTIONS (7)
  - DIZZINESS [None]
  - NAUSEA [None]
  - ABDOMINAL PAIN [None]
  - VOMITING [None]
  - GASTROOESOPHAGEAL REFLUX DISEASE [None]
  - COUGH [None]
  - DIARRHOEA [None]
